FAERS Safety Report 7369656-8 (Version None)
Quarter: 2011Q1

REPORT INFORMATION
  Report Type: 
  Country: None (occurrence: None)
  Receive Date: 20110315
  Receipt Date: 20110301
  Transmission Date: 20110831
  Serious: Yes (Hospitalization)
  Sender: FDA-Public Use
  Company Number: NL-004589

PATIENT
  Age: 79 Year
  Sex: Female

DRUGS (3)
  1. THYROXNI [Concomitant]
  2. MINIRIN [Suspect]
     Indication: HYPERTONIC BLADDER
     Dosage: (0.2 MG ORAL)
     Route: 048
  3. MOVICOLON [Concomitant]

REACTIONS (5)
  - AORTIC ARTERIOSCLEROSIS [None]
  - AORTIC STENOSIS [None]
  - CARDIAC MURMUR [None]
  - INAPPROPRIATE ANTIDIURETIC HORMONE SECRETION [None]
  - BLOOD PRESSURE SYSTOLIC INCREASED [None]
